FAERS Safety Report 8774519 (Version 1)
Quarter: 2012Q4

REPORT INFORMATION
  Report Type: 
  Country: US (occurrence: US)
  Receive Date: 20120907
  Receipt Date: 20120907
  Transmission Date: 20130627
  Serious: No
  Sender: FDA-Public Use
  Company Number: US-BIOGENIDEC-2012BI035372

PATIENT
  Age: 41 Year
  Sex: Male

DRUGS (1)
  1. TYSABRI [Suspect]
     Indication: MULTIPLE SCLEROSIS
     Route: 042
     Dates: start: 20070907

REACTIONS (3)
  - Hypoaesthesia [Not Recovered/Not Resolved]
  - Sinusitis [Not Recovered/Not Resolved]
  - Headache [Not Recovered/Not Resolved]
